FAERS Safety Report 16529254 (Version 1)
Quarter: 2019Q3

REPORT INFORMATION
  Report Type: Spontaneous
  Country: US (occurrence: US)
  Receive Date: 20190704
  Receipt Date: 20190704
  Transmission Date: 20191004
  Serious: No
  Sender: FDA-Public Use
  Company Number: US-GW PHARMA-201906USGW1984

PATIENT

DRUGS (2)
  1. EPIDIOLEX [Suspect]
     Active Substance: CANNABIDIOL
     Indication: LENNOX-GASTAUT SYNDROME
     Dosage: 220 MILLIGRAM, BID
     Route: 048
     Dates: start: 201904, end: 201905
  2. EPIDIOLEX [Suspect]
     Active Substance: CANNABIDIOL
     Dosage: 220 MILLIGRAM, BID
     Dates: start: 201905

REACTIONS (6)
  - Diarrhoea [Unknown]
  - Flushing [Unknown]
  - Incorrect dose administered [Unknown]
  - Product quality issue [Unknown]
  - Seizure [Unknown]
  - Heart rate increased [Unknown]

NARRATIVE: CASE EVENT DATE: 201905
